FAERS Safety Report 7045174-1 (Version None)
Quarter: 2010Q4

REPORT INFORMATION
  Report Type: 
  Country: None (occurrence: None)
  Receive Date: 20101014
  Receipt Date: 20100707
  Transmission Date: 20110411
  Serious: No
  Sender: FDA-Public Use
  Company Number: US-ALLERGAN-1008802US

PATIENT
  Age: 54 Year
  Sex: Female

DRUGS (1)
  1. LATISSE [Suspect]
     Indication: GROWTH OF EYELASHES
     Dosage: 1 GTT, QHS
     Route: 061
     Dates: start: 20100601, end: 20100706

REACTIONS (2)
  - MADAROSIS [None]
  - WRONG TECHNIQUE IN DRUG USAGE PROCESS [None]
